FAERS Safety Report 7395317-5 (Version None)
Quarter: 2011Q1

REPORT INFORMATION
  Report Type: 
  Country: None (occurrence: None)
  Receive Date: 20110331
  Receipt Date: 20110331
  Transmission Date: 20110831
  Serious: No
  Sender: FDA-Public Use
  Company Number: None

PATIENT
  Age: 37 Year
  Sex: Female
  Weight: 58.9676 kg

DRUGS (1)
  1. CVS PRENATEL MULTIVITAMINE CVS [Suspect]
     Indication: PREGNANCY
     Dosage: 1 TABLET DAILY PO
     Route: 048
     Dates: start: 20101110, end: 20101113

REACTIONS (3)
  - RASH [None]
  - HYPERSENSITIVITY [None]
  - PRURITUS [None]
